FAERS Safety Report 7931226-8 (Version None)
Quarter: 2011Q4

REPORT INFORMATION
  Report Type: 
  Country: None (occurrence: None)
  Receive Date: 20111121
  Receipt Date: 20111110
  Transmission Date: 20120403
  Serious: Yes (Other)
  Sender: FDA-Public Use
  Company Number: US-BAYER-2011-075633

PATIENT
  Age: 27 Year
  Sex: Female

DRUGS (4)
  1. PLAQUENIL [Concomitant]
     Dosage: UNK
     Dates: start: 20070101
  2. YASMIN [Suspect]
     Indication: PREMENSTRUAL SYNDROME
  3. YASMIN [Suspect]
     Indication: CONTRACEPTION
     Dosage: UNK
     Dates: start: 20070801, end: 20080601
  4. YASMIN [Suspect]
     Indication: ACNE

REACTIONS (1)
  - GALLBLADDER INJURY [None]
